FAERS Safety Report 9009884 (Version 1)
Quarter: 2013Q1

REPORT INFORMATION
  Report Type: Spontaneous
  Country: AU (occurrence: AU)
  Receive Date: 20130110
  Receipt Date: 20130110
  Transmission Date: 20140127
  Serious: Yes (Other)
  Sender: FDA-Public Use
  Company Number: AU-BAYER-2013-002993

PATIENT
  Age: 62 Year
  Sex: Female

DRUGS (5)
  1. ACETYLSALICYLIC ACID({=100 MG) [Suspect]
  2. FESOTERODINE [Suspect]
     Dosage: 12 MG, UNK
  3. NITRENDIPINE [Concomitant]
  4. ATENOLOL [Concomitant]
  5. NIFEDIPINE [Concomitant]

REACTIONS (3)
  - Gastrointestinal haemorrhage [None]
  - Ileus [None]
  - Nausea [None]
